FAERS Safety Report 16904680 (Version 2)
Quarter: 2020Q1

REPORT INFORMATION
  Report Type: Spontaneous
  Country: GB (occurrence: GB)
  Receive Date: 20191010
  Receipt Date: 20200128
  Transmission Date: 20200409
  Serious: Yes (Other)
  Sender: FDA-Public Use
  Company Number: GB-MYLANLABS-2018M1088711

PATIENT
  Sex: Male

DRUGS (2)
  1. DEPIXOL                            /00109702/ [Concomitant]
     Active Substance: FLUPENTIXOL DIHYDROCHLORIDE
     Dosage: UNK
  2. CLOZARIL [Suspect]
     Active Substance: CLOZAPINE
     Indication: SCHIZOPHRENIA
     Dosage: 550 MILLIGRAM, QD, (250MG IN THE MORNING 300MG AT NIGHT)
     Route: 048
     Dates: start: 20060210

REACTIONS (7)
  - Constipation [Not Recovered/Not Resolved]
  - Mental disorder [Unknown]
  - Antipsychotic drug level increased [Not Recovered/Not Resolved]
  - Ileus paralytic [Unknown]
  - Electrocardiogram QT prolonged [Unknown]
  - Product dose omission [Unknown]
  - Hallucination, auditory [Unknown]

NARRATIVE: CASE EVENT DATE: 2019
